FAERS Safety Report 20151264 (Version 1)
Quarter: 2021Q4

REPORT INFORMATION
  Report Type: Spontaneous
  Country: US (occurrence: US)
  Receive Date: 20211206
  Receipt Date: 20211206
  Transmission Date: 20220303
  Serious: No
  Sender: FDA-Public Use
  Company Number: US-ELI_LILLY_AND_COMPANY-US202112001346

PATIENT
  Sex: Female

DRUGS (2)
  1. TRULICITY [Suspect]
     Active Substance: DULAGLUTIDE
     Indication: Type 2 diabetes mellitus
     Dosage: UNK UNK, UNKNOWN
     Route: 058
  2. ASPIRIN [Suspect]
     Active Substance: ASPIRIN
     Indication: Blood cholesterol
     Dosage: 325 MG, UNKNOWN
     Route: 065

REACTIONS (4)
  - Weight decreased [Unknown]
  - Tinnitus [Unknown]
  - Injection site pain [Recovered/Resolved]
  - Product administered at inappropriate site [Recovered/Resolved]
